FAERS Safety Report 4848063-3 (Version None)
Quarter: 2005Q4

REPORT INFORMATION
  Report Type: 
  Country: None (occurrence: None)
  Receive Date: 20051208
  Receipt Date: 20051117
  Transmission Date: 20060501
  Serious: Yes (Hospitalization)
  Sender: FDA-Public Use
  Company Number: IT-ABBOTT-05P-083-0317505-00

PATIENT
  Sex: Male

DRUGS (2)
  1. VECLAM [Suspect]
     Indication: BRONCHOPNEUMONIA
     Route: 048
     Dates: start: 20051010, end: 20051102
  2. ZOCOR [Suspect]
     Indication: HYPERCHOLESTEROLAEMIA
     Route: 048
     Dates: start: 20051010, end: 20051104

REACTIONS (3)
  - ASTHENIA [None]
  - MYALGIA [None]
  - RHABDOMYOLYSIS [None]
